FAERS Safety Report 6893209-9 (Version None)
Quarter: 2010Q3

REPORT INFORMATION
  Report Type: 
  Country: None (occurrence: None)
  Receive Date: 20100731
  Receipt Date: 20090629
  Transmission Date: 20110219
  Serious: No
  Sender: FDA-Public Use
  Company Number: US-PFIZER INC-2009234277

PATIENT
  Sex: Female

DRUGS (1)
  1. NEURONTIN [Suspect]

REACTIONS (1)
  - WEIGHT INCREASED [None]
